FAERS Safety Report 12313173 (Version 3)
Quarter: 2016Q2

REPORT INFORMATION
  Report Type: Report from Study
  Country: NZ (occurrence: NZ)
  Receive Date: 20160428
  Receipt Date: 20160511
  Transmission Date: 20160815
  Serious: Yes (Hospitalization)
  Sender: FDA-Public Use
  Company Number: NZ-JNJFOC-20150209744

PATIENT
  Age: 71 Year
  Sex: Male
  Weight: 86 kg

DRUGS (28)
  1. OMEPRAZOLE. [Concomitant]
     Active Substance: OMEPRAZOLE
     Route: 048
  2. FRAMYCETIN SULFATE [Concomitant]
     Active Substance: FRAMYCETIN SULFATE
     Route: 065
  3. FLUCLOXACILLIN [Concomitant]
     Active Substance: FLUCLOXACILLIN
     Route: 048
  4. CANAGLIFLOZIN [Suspect]
     Active Substance: CANAGLIFLOZIN
     Indication: TYPE 2 DIABETES MELLITUS
     Route: 048
     Dates: start: 20100727, end: 20160420
  5. SPIROLACTONE [Concomitant]
     Active Substance: SPIRONOLACTONE
     Dosage: QAM (IN THE MORNING)
     Route: 048
  6. TRAMADOL. [Concomitant]
     Active Substance: TRAMADOL
     Route: 048
  7. COLCHICINE. [Concomitant]
     Active Substance: COLCHICINE
     Route: 048
  8. AUGMENTIN [Concomitant]
     Active Substance: AMOXICILLIN\CLAVULANATE POTASSIUM
     Route: 048
  9. LANTUS [Concomitant]
     Active Substance: INSULIN GLARGINE
     Dosage: AT NIGHT
     Route: 065
     Dates: start: 20131028
  10. LANTUS [Concomitant]
     Active Substance: INSULIN GLARGINE
     Route: 065
     Dates: start: 20110705
  11. NOVOMIX [Concomitant]
     Active Substance: INSULIN ASPART
     Route: 065
     Dates: start: 20141228
  12. CANAGLIFLOZIN [Suspect]
     Active Substance: CANAGLIFLOZIN
     Route: 048
  13. PREDNISONE. [Concomitant]
     Active Substance: PREDNISONE
     Route: 048
  14. AMOXIL [Concomitant]
     Active Substance: AMOXICILLIN
     Route: 048
  15. MIDAZOLAM [Concomitant]
     Active Substance: MIDAZOLAM\MIDAZOLAM HYDROCHLORIDE
     Dosage: START IMMEDIATELY
     Route: 042
  16. ALLOPURINOL. [Concomitant]
     Active Substance: ALLOPURINOL
     Route: 048
  17. FUROSEMIDE. [Concomitant]
     Active Substance: FUROSEMIDE
     Route: 048
  18. DICLOFENAC [Concomitant]
     Active Substance: DICLOFENAC
     Route: 048
  19. SIMVASTATIN. [Concomitant]
     Active Substance: SIMVASTATIN
     Route: 048
  20. SIMVASTATIN. [Concomitant]
     Active Substance: SIMVASTATIN
     Dosage: HS (AT BED TIME)
     Route: 048
  21. BETALOC [Concomitant]
     Active Substance: METOPROLOL TARTRATE
     Route: 048
  22. BETALOC [Concomitant]
     Active Substance: METOPROLOL TARTRATE
     Route: 048
  23. TRAMADOL. [Concomitant]
     Active Substance: TRAMADOL
     Route: 048
  24. CODEINE PHOSPHATE [Concomitant]
     Active Substance: CODEINE PHOSPHATE
     Route: 048
  25. PARACETAMOL [Concomitant]
     Active Substance: ACETAMINOPHEN
     Route: 048
  26. ACCUPRIL [Concomitant]
     Active Substance: QUINAPRIL HYDROCHLORIDE
     Route: 048
  27. ASPIRIN. [Concomitant]
     Active Substance: ASPIRIN
     Indication: CARDIOMYOPATHY
     Route: 048
  28. FENTANYL. [Concomitant]
     Active Substance: FENTANYL
     Dosage: 75 MICROGRAM
     Route: 042

REACTIONS (2)
  - Diabetic foot infection [Recovered/Resolved]
  - Localised infection [Not Recovered/Not Resolved]

NARRATIVE: CASE EVENT DATE: 20141224
